FAERS Safety Report 9375509 (Version 3)
Quarter: 2013Q3

REPORT INFORMATION
  Report Type: Spontaneous
  Country: BR (occurrence: BR)
  Receive Date: 20130628
  Receipt Date: 20130917
  Transmission Date: 20140515
  Serious: Yes (Hospitalization)
  Sender: FDA-Public Use
  Company Number: BR-BRISTOL-MYERS SQUIBB COMPANY-19052455

PATIENT
  Age: 70 Year
  Sex: Female

DRUGS (7)
  1. ONGLYZA TABS 5 MG [Suspect]
  2. DIOVAN [Concomitant]
  3. INDAPAMIDE [Concomitant]
  4. CLOPIDOGREL BISULFATE [Concomitant]
  5. SELOZOK [Concomitant]
  6. ATORVASTATIN [Concomitant]
  7. SERTRALINE HCL [Concomitant]

REACTIONS (2)
  - Blood pressure abnormal [Unknown]
  - Transient ischaemic attack [Unknown]
